FAERS Safety Report 25364402 (Version 1)
Quarter: 2025Q2

REPORT INFORMATION
  Report Type: Spontaneous
  Country: JP (occurrence: JP)
  Receive Date: 20250527
  Receipt Date: 20250527
  Transmission Date: 20250716
  Serious: Yes (Hospitalization, Other)
  Sender: PFIZER
  Company Number: JP-PFIZER INC-PV202400135324

PATIENT
  Age: 70 Year
  Sex: Male

DRUGS (3)
  1. ELREXFIO [Suspect]
     Active Substance: ELRANATAMAB-BCMM
     Route: 058
     Dates: start: 20241008
  2. ELREXFIO [Suspect]
     Active Substance: ELRANATAMAB-BCMM
  3. ELREXFIO [Suspect]
     Active Substance: ELRANATAMAB-BCMM
     Route: 058
     Dates: start: 20241015

REACTIONS (8)
  - Cytokine release syndrome [Recovered/Resolved]
  - Hypogammaglobulinaemia [Unknown]
  - Cytomegalovirus infection [Recovered/Resolved]
  - Pneumonia aspiration [Recovering/Resolving]
  - Disseminated intravascular coagulation [Recovering/Resolving]
  - Blood creatinine abnormal [Recovering/Resolving]
  - Diarrhoea [Not Recovered/Not Resolved]
  - Irritable bowel syndrome [Not Recovered/Not Resolved]

NARRATIVE: CASE EVENT DATE: 20241010
